FAERS Safety Report 14301017 (Version 7)
Quarter: 2019Q2

REPORT INFORMATION
  Report Type: Spontaneous
  Country: US (occurrence: US)
  Receive Date: 20171219
  Receipt Date: 20190618
  Transmission Date: 20190711
  Serious: Yes (Hospitalization)
  Sender: FDA-Public Use
  Company Number: US-PFIZER INC-2017456252

PATIENT
  Age: 15 Year
  Sex: Male
  Weight: 65.76 kg

DRUGS (4)
  1. GENOTROPIN [Suspect]
     Active Substance: SOMATROPIN
     Indication: GROWTH HORMONE DEFICIENCY
     Dosage: 2.2 MG, DAILY (SIX DAYS ON AND ONE DAY OFF)
     Route: 058
     Dates: start: 201711
  2. GENOTROPIN [Suspect]
     Active Substance: SOMATROPIN
     Dosage: 3 MG, [6 DAYS]
     Route: 058
     Dates: start: 201711
  3. GENOTROPIN [Suspect]
     Active Substance: SOMATROPIN
     Dosage: 3.4 MG, 6 DAYS PER WEEK
     Dates: start: 2018
  4. GENOTROPIN [Suspect]
     Active Substance: SOMATROPIN
     Dosage: 3.2 MG 6 DAYS A WEEK
     Dates: start: 201811

REACTIONS (7)
  - Product dose omission [Unknown]
  - Device issue [Unknown]
  - Injection site vesicles [Unknown]
  - Pain in extremity [Unknown]
  - Wrong technique in device usage process [Unknown]
  - Tremor [Unknown]
  - Mental disorder [Unknown]

NARRATIVE: CASE EVENT DATE: 20171212
